FAERS Safety Report 15118539 (Version 1)
Quarter: 2018Q3

REPORT INFORMATION
  Report Type: Spontaneous
  Country: GB (occurrence: GB)
  Receive Date: 20180709
  Receipt Date: 20180709
  Transmission Date: 20181010
  Serious: Yes (Hospitalization, Other)
  Sender: FDA-Public Use
  Company Number: GB-ACCORD-069201

PATIENT
  Age: 49 Year
  Sex: Female

DRUGS (5)
  1. METHYLPREDNISOLONE. [Concomitant]
     Active Substance: METHYLPREDNISOLONE
     Indication: SCLERITIS
     Dosage: 500 MG DAILY FOR 3 DAYS
     Route: 042
  2. LYMECYCLINE [Concomitant]
     Active Substance: LYMECYCLINE
     Indication: PYODERMA GANGRENOSUM
     Route: 048
  3. BETAMETHASONE VALERATE/FUSIDIC ACID [Concomitant]
     Indication: PYODERMA GANGRENOSUM
     Route: 061
  4. METHOTREXATE. [Suspect]
     Active Substance: METHOTREXATE
     Indication: COGAN^S SYNDROME
     Route: 048
  5. PREDNISOLONE. [Concomitant]
     Active Substance: PREDNISOLONE
     Indication: COGAN^S SYNDROME
     Dosage: UP TO 20MG DAILY THEN INCREASED
     Route: 048

REACTIONS (3)
  - Pneumonia [Unknown]
  - Scleritis [Recovering/Resolving]
  - Off label use [Unknown]
